FAERS Safety Report 20690605 (Version 1)
Quarter: 2022Q2

REPORT INFORMATION
  Report Type: Spontaneous
  Country: AR (occurrence: AR)
  Receive Date: 20220408
  Receipt Date: 20220408
  Transmission Date: 20220721
  Serious: Yes (Other)
  Sender: FDA-Public Use
  Company Number: AR-PFIZER INC-202200490108

PATIENT
  Age: 72 Year
  Sex: Female

DRUGS (1)
  1. IBRANCE [Suspect]
     Active Substance: PALBOCICLIB
     Indication: Neoplasm malignant
     Dosage: DAILY, SCHEME 3X1, TOOK 1 PER DAY AND RESTED 7 DAYS)
     Dates: end: 202202

REACTIONS (4)
  - Renal disorder [Unknown]
  - Nephritis [Unknown]
  - Decreased immune responsiveness [Unknown]
  - Tumour marker increased [Unknown]
